FAERS Safety Report 20191517 (Version 1)
Quarter: 2021Q4

REPORT INFORMATION
  Report Type: Spontaneous
  Country: US (occurrence: US)
  Receive Date: 20211216
  Receipt Date: 20211216
  Transmission Date: 20220303
  Serious: No
  Sender: FDA-Public Use
  Company Number: US-ENDO PHARMACEUTICALS INC-2021-000053

PATIENT
  Age: 58 Year
  Sex: Male

DRUGS (2)
  1. XIAFLEX [Suspect]
     Active Substance: COLLAGENASE CLOSTRIDIUM HISTOLYTICUM
     Indication: Peyronie^s disease
     Dosage: 0.9 MG, UNKNOWN (CYCLE 2, INJECTION 1 + 2)
     Route: 065
     Dates: start: 202012
  2. XIAFLEX [Suspect]
     Active Substance: COLLAGENASE CLOSTRIDIUM HISTOLYTICUM
     Dosage: 0.9 MG, UNKNOWN (CYCLE 1, INJECTION 1 + 2)
     Route: 065
     Dates: start: 202010

REACTIONS (7)
  - Drainage [Unknown]
  - Throat irritation [Unknown]
  - Pain [Recovering/Resolving]
  - Throat tightness [Unknown]
  - Dysphonia [Unknown]
  - Contusion [Recovering/Resolving]
  - Hypersensitivity [Unknown]

NARRATIVE: CASE EVENT DATE: 20201001
